FAERS Safety Report 13221819 (Version 2)
Quarter: 2017Q1

REPORT INFORMATION
  Report Type: Report from Study
  Country: CA (occurrence: CA)
  Receive Date: 20170211
  Receipt Date: 20170216
  Transmission Date: 20170428
  Serious: Yes (Other)
  Sender: FDA-Public Use
  Company Number: CA-AMGEN-CANSL2017020680

PATIENT
  Sex: Female

DRUGS (9)
  1. XGEVA [Suspect]
     Active Substance: DENOSUMAB
     Indication: BREAST CANCER
     Dosage: 120 MG (1.7 ML), UNK
     Route: 065
     Dates: start: 20170112
  2. TAMOXIFEN [Concomitant]
     Active Substance: TAMOXIFEN
  3. LETROZOLE. [Concomitant]
     Active Substance: LETROZOLE
  4. EXEMESTANE. [Concomitant]
     Active Substance: EXEMESTANE
  5. CAPECITABINE. [Concomitant]
     Active Substance: CAPECITABINE
  6. ADRIAMYCIN [Concomitant]
     Active Substance: DOXORUBICIN HYDROCHLORIDE
  7. EVEROLIMUS [Concomitant]
     Active Substance: EVEROLIMUS
  8. ABRAXANE [Concomitant]
     Active Substance: PACLITAXEL
  9. ERIBULIN [Concomitant]
     Active Substance: ERIBULIN

REACTIONS (2)
  - Hypercalcaemia [Unknown]
  - Cytopenia [Not Recovered/Not Resolved]
